FAERS Safety Report 16083250 (Version 1)
Quarter: 2019Q1

REPORT INFORMATION
  Report Type: Spontaneous
  Country: IT (occurrence: IT)
  Receive Date: 20190318
  Receipt Date: 20190318
  Transmission Date: 20190418
  Serious: Yes (Other)
  Sender: FDA-Public Use
  Company Number: IT-SA-2019SA072062

PATIENT
  Age: 45 Year
  Sex: Female
  Weight: 62 kg

DRUGS (1)
  1. FERLIXIT [Suspect]
     Active Substance: SODIUM FERRIC GLUCONATE COMPLEX
     Indication: IRON DEFICIENCY ANAEMIA
     Route: 041
     Dates: start: 20190306, end: 20190306

REACTIONS (3)
  - Nausea [Recovered/Resolved]
  - Dermatitis bullous [Recovered/Resolved]
  - Paraesthesia [Recovered/Resolved]

NARRATIVE: CASE EVENT DATE: 20190306
